FAERS Safety Report 17151909 (Version 1)
Quarter: 2019Q4

REPORT INFORMATION
  Report Type: Spontaneous
  Country: US (occurrence: US)
  Receive Date: 20191213
  Receipt Date: 20191213
  Transmission Date: 20200122
  Serious: Yes (Death, Other)
  Sender: FDA-Public Use
  Company Number: US-009507513-1912USA004453

PATIENT
  Age: 41 Year
  Sex: Male

DRUGS (5)
  1. AMLODIPINE [Suspect]
     Active Substance: AMLODIPINE BESYLATE
     Dosage: INGESTION PLUS PARENTERAL
  2. CITALOPRAM [Suspect]
     Active Substance: CITALOPRAM HYDROBROMIDE
     Dosage: INGESTION PLUS PARENTERAL
  3. CARVEDILOL. [Suspect]
     Active Substance: CARVEDILOL
     Dosage: INGESTION PLUS PARENTERAL
  4. PRINIVIL [Suspect]
     Active Substance: LISINOPRIL
     Dosage: INGESTION PLUS PARENTERAL
  5. INSULIN [Suspect]
     Active Substance: INSULIN NOS
     Dosage: INGESTION PLUS PARENTERAL

REACTIONS (1)
  - Suspected suicide [Fatal]
